FAERS Safety Report 16307107 (Version 2)
Quarter: 2019Q2

REPORT INFORMATION
  Report Type: Report from Study
  Country: US (occurrence: US)
  Receive Date: 20190513
  Receipt Date: 20190613
  Transmission Date: 20190711
  Serious: Yes (Other)
  Sender: FDA-Public Use
  Company Number: US-SA-2015SA209834

PATIENT
  Age: 57 Year
  Sex: Female

DRUGS (1)
  1. TERIFLUNOMIDE. [Suspect]
     Active Substance: TERIFLUNOMIDE
     Indication: MULTIPLE SCLEROSIS
     Dosage: 14 MG,QD
     Route: 048
     Dates: start: 20151119

REACTIONS (14)
  - Dyspnoea [Unknown]
  - Chest pain [Not Recovered/Not Resolved]
  - White blood cell count decreased [Unknown]
  - Headache [Not Recovered/Not Resolved]
  - Product use issue [Unknown]
  - Hypoaesthesia [Unknown]
  - Costochondritis [Unknown]
  - Diarrhoea [Recovered/Resolved]
  - Alopecia [Unknown]
  - Condition aggravated [Not Recovered/Not Resolved]
  - Sinusitis [Not Recovered/Not Resolved]
  - Thyroid cancer [Unknown]
  - Dyspnoea [Not Recovered/Not Resolved]
  - White blood cell count abnormal [Unknown]

NARRATIVE: CASE EVENT DATE: 2015
